FAERS Safety Report 5762298-7 (Version None)
Quarter: 2008Q2

REPORT INFORMATION
  Report Type: 
  Country: None (occurrence: None)
  Receive Date: 20080609
  Receipt Date: 20080529
  Transmission Date: 20081010
  Serious: Yes (Other)
  Sender: FDA-Public Use
  Company Number: US-JNJFOC-20080600171

PATIENT
  Sex: Female
  Weight: 68.04 kg

DRUGS (4)
  1. ULTRAM [Suspect]
     Indication: PAIN IN EXTREMITY
     Route: 048
  2. NEXIUM [Concomitant]
     Indication: GASTROOESOPHAGEAL REFLUX DISEASE
     Route: 048
  3. BETAMOL [Concomitant]
     Indication: GLAUCOMA
     Dosage: 1 DROP IN EACH EYE
     Route: 047
  4. TOPROL-XL [Concomitant]
     Indication: MIGRAINE
     Route: 048

REACTIONS (1)
  - VISION BLURRED [None]
